FAERS Safety Report 7437986-7 (Version None)
Quarter: 2011Q2

REPORT INFORMATION
  Report Type: 
  Country: None (occurrence: None)
  Receive Date: 20110420
  Receipt Date: 20110105
  Transmission Date: 20111010
  Serious: Yes (Hospitalization, Other)
  Sender: FDA-Public Use
  Company Number: 024719

PATIENT
  Sex: Male
  Weight: 91 kg

DRUGS (2)
  1. LACOSAMIDE [Suspect]
     Indication: EPILEPSY
     Dosage: 200 MG BID, ORAL; (250 MG BID ORAL)
     Route: 048
     Dates: start: 20101231, end: 20110404
  2. LACOSAMIDE [Suspect]
     Indication: EPILEPSY
     Dosage: 200 MG BID, ORAL; (250 MG BID ORAL)
     Route: 048
     Dates: start: 20100326, end: 20101230

REACTIONS (16)
  - GAMMA-GLUTAMYLTRANSFERASE INCREASED [None]
  - VIRAL SKIN INFECTION [None]
  - BONE PAIN [None]
  - DRUG DOSE OMISSION [None]
  - ALANINE AMINOTRANSFERASE INCREASED [None]
  - HEPATIC LESION [None]
  - WOUND [None]
  - CONFUSIONAL STATE [None]
  - CEREBRAL HAEMORRHAGE [None]
  - ASPARTATE AMINOTRANSFERASE INCREASED [None]
  - ALCOHOL ABUSE [None]
  - GRAND MAL CONVULSION [None]
  - HEAD INJURY [None]
  - BRAIN CONTUSION [None]
  - COMPLEX PARTIAL SEIZURES [None]
  - CONVULSION [None]
